FAERS Safety Report 21247239 (Version 2)
Quarter: 2022Q3

REPORT INFORMATION
  Report Type: Spontaneous
  Country: DE (occurrence: DE)
  Receive Date: 20220824
  Receipt Date: 20220922
  Transmission Date: 20221027
  Serious: Yes (Hospitalization)
  Sender: FDA-Public Use
  Company Number: DE-ORGANON-O2207DEU001591

PATIENT
  Age: 66 Year
  Sex: Female
  Weight: 62 kg

DRUGS (25)
  1. EZETIMIBE [Suspect]
     Active Substance: EZETIMIBE
     Indication: Hypercholesterolaemia
     Dosage: UNK
     Route: 048
  2. EZETIMIBE [Suspect]
     Active Substance: EZETIMIBE
     Indication: Condition aggravated
     Dosage: 10 MILLIGRAM, QD
     Route: 048
     Dates: start: 20220311
  3. EZETIMIBE [Suspect]
     Active Substance: EZETIMIBE
     Dosage: 10 MILLIGRAM, QD
     Route: 048
     Dates: start: 20220704
  4. CANDESARTAN [Suspect]
     Active Substance: CANDESARTAN
     Indication: Condition aggravated
     Dosage: 32 MILLIGRAM, QD
     Route: 048
     Dates: start: 20220311
  5. CANDESARTAN [Suspect]
     Active Substance: CANDESARTAN
     Indication: Hypertension
     Dosage: 0.16 MILLIGRAM, QD
     Route: 048
     Dates: start: 20220705
  6. CANDESARTAN [Suspect]
     Active Substance: CANDESARTAN
     Dosage: 0.16 MILLIGRAM, QD
     Route: 048
     Dates: start: 20220707
  7. METOPROLOL [Suspect]
     Active Substance: METOPROLOL
     Indication: Condition aggravated
     Dosage: 47.5 MILLIGRAM, QD
     Route: 048
     Dates: start: 20220311
  8. METOPROLOL [Suspect]
     Active Substance: METOPROLOL
     Indication: Hypertension
     Dosage: 47.5 MILLIGRAM, QD
     Route: 048
     Dates: start: 20220705
  9. METOPROLOL [Suspect]
     Active Substance: METOPROLOL
     Indication: Insomnia
  10. HYDROCHLOROTHIAZIDE [Suspect]
     Active Substance: HYDROCHLOROTHIAZIDE
     Indication: Condition aggravated
     Dosage: 25 MILLIGRAM, QD
     Route: 048
     Dates: start: 20220311
  11. HYDROCHLOROTHIAZIDE [Suspect]
     Active Substance: HYDROCHLOROTHIAZIDE
     Indication: Hypertension
     Dosage: 25 MILLIGRAM, QD
     Route: 048
     Dates: start: 20220704
  12. HYDROCHLOROTHIAZIDE [Suspect]
     Active Substance: HYDROCHLOROTHIAZIDE
     Dosage: 25 MILLIGRAM, QD
     Route: 048
     Dates: start: 20220705
  13. CARBOPLATIN [Suspect]
     Active Substance: CARBOPLATIN
     Indication: Non-small cell lung cancer stage III
     Dosage: AUC 6 MG/ML/MIN, ONCE, 1 TOTAL
     Route: 042
     Dates: start: 20220419, end: 20220614
  14. CARBOPLATIN [Suspect]
     Active Substance: CARBOPLATIN
     Dosage: AUC 2 MG/ML/MIN ON DAY1,8,15INCYCLE2AND3;CYCLICAL
     Route: 042
     Dates: start: 20220509, end: 20220614
  15. CARBOPLATIN [Suspect]
     Active Substance: CARBOPLATIN
     Dosage: AUC 6 MG/ML/MIN ON DAY 1 IN CYCLE1, ONCE,TOTAL
     Route: 042
     Dates: start: 20220419, end: 20220419
  16. PEMBROLIZUMAB [Suspect]
     Active Substance: PEMBROLIZUMAB
     Indication: Non-small cell lung cancer stage III
     Dosage: UNK
     Route: 065
  17. PACLITAXEL [Suspect]
     Active Substance: PACLITAXEL
     Indication: Non-small cell lung cancer stage III
     Dosage: 200 MG/M2, ONCE, 1 TOTAL
     Route: 042
     Dates: start: 20220419, end: 20220614
  18. PACLITAXEL [Suspect]
     Active Substance: PACLITAXEL
     Dosage: 200 MG/M2,ON DAY 1 IN CYCLE 1, TOTAL
     Route: 042
     Dates: start: 20220419, end: 20220419
  19. PACLITAXEL [Suspect]
     Active Substance: PACLITAXEL
     Dosage: 45 MG/M2,ON DAY1,8AND15 IN CYCLE 2 AND 3 CYCLICAL
     Route: 042
     Dates: start: 20220509, end: 20220614
  20. INDACATEROL [Suspect]
     Active Substance: INDACATEROL
     Indication: Condition aggravated
     Dosage: 85 MICROGRAM, QD; FORMULATION REPORTED AS INHALANT
     Dates: start: 20220705
  21. ATORVASTATIN [Suspect]
     Active Substance: ATORVASTATIN
     Indication: Condition aggravated
     Dosage: 40 MILLIGRAM, QD
     Route: 048
     Dates: start: 20220311
  22. ATORVASTATIN [Suspect]
     Active Substance: ATORVASTATIN
     Indication: Hypercholesterolaemia
     Dosage: 40 MILLIGRAM, QD
     Route: 048
     Dates: start: 20220704
  23. ASPIRIN [Suspect]
     Active Substance: ASPIRIN
     Indication: Anticoagulant therapy
     Dosage: 100 MILLIGRAM, QD
     Route: 048
     Dates: start: 20220311
  24. ASPIRIN [Suspect]
     Active Substance: ASPIRIN
     Indication: Condition aggravated
     Dosage: 100 MILLIGRAM, QD
     Route: 048
     Dates: start: 20220705
  25. ZOPICLONE [Concomitant]
     Active Substance: ZOPICLONE
     Indication: Insomnia
     Dosage: 3.75 MILLIGRAM, QD
     Route: 048
     Dates: start: 20220607

REACTIONS (3)
  - Chronic obstructive pulmonary disease [Recovered/Resolved]
  - Radiation pneumonitis [Recovered/Resolved]
  - Product use in unapproved indication [Unknown]

NARRATIVE: CASE EVENT DATE: 20220629
